FAERS Safety Report 6538736-9 (Version None)
Quarter: 2010Q1

REPORT INFORMATION
  Report Type: 
  Country: None (occurrence: None)
  Receive Date: 20100114
  Receipt Date: 20100114
  Transmission Date: 20100710
  Serious: Yes (Other)
  Sender: FDA-Public Use
  Company Number: None

PATIENT
  Age: 49 Year
  Sex: Female
  Weight: 63.9572 kg

DRUGS (1)
  1. KAPIDEX [Suspect]
     Indication: LEPROSY
     Dosage: 60 MG ONCE A DAY PO
     Route: 048
     Dates: start: 20090601, end: 20091215

REACTIONS (1)
  - VERTIGO [None]
